FAERS Safety Report 19098185 (Version 1)
Quarter: 2021Q2

REPORT INFORMATION
  Report Type: Spontaneous
  Country: US (occurrence: US)
  Receive Date: 20210406
  Receipt Date: 20210406
  Transmission Date: 20210717
  Serious: Yes (Other)
  Sender: FDA-Public Use
  Company Number: US-ELI_LILLY_AND_COMPANY-US202103013162

PATIENT
  Sex: Female

DRUGS (1)
  1. TALTZ [Suspect]
     Active Substance: IXEKIZUMAB
     Indication: PRODUCT USED FOR UNKNOWN INDICATION
     Dosage: 160 MG, SINGLE
     Route: 065

REACTIONS (6)
  - Nausea [Unknown]
  - Deafness unilateral [Unknown]
  - Hypoaesthesia [Unknown]
  - Tinnitus [Unknown]
  - Dizziness [Unknown]
  - Vomiting [Unknown]
